FAERS Safety Report 11782111 (Version 2)
Quarter: 2017Q1

REPORT INFORMATION
  Report Type: Report from Study
  Country: CA (occurrence: CA)
  Receive Date: 20151127
  Receipt Date: 20170131
  Transmission Date: 20170428
  Serious: Yes (Hospitalization)
  Sender: FDA-Public Use
  Company Number: CA-ROCHE-ITM201408IM006804

PATIENT
  Age: 66 Year
  Sex: Female
  Weight: 95 kg

DRUGS (20)
  1. NORVASC [Concomitant]
     Active Substance: AMLODIPINE BESYLATE
  2. OSCAL [Concomitant]
     Active Substance: CALCIUM CARBONATE
  3. ESBRIET [Suspect]
     Active Substance: PIRFENIDONE
     Dosage: 534 MG, 267 MG, 534 MG (2-1-2)
     Route: 048
     Dates: start: 20140828
  4. ESBRIET [Suspect]
     Active Substance: PIRFENIDONE
     Route: 048
  5. TOVIAZ [Concomitant]
     Active Substance: FESOTERODINE FUMARATE
  6. AZATHIOPRINE. [Concomitant]
     Active Substance: AZATHIOPRINE
  7. ESBRIET [Suspect]
     Active Substance: PIRFENIDONE
     Indication: IDIOPATHIC PULMONARY FIBROSIS
     Route: 048
     Dates: start: 20140321
  8. ESBRIET [Suspect]
     Active Substance: PIRFENIDONE
     Route: 048
     Dates: start: 20140622
  9. ESBRIET [Suspect]
     Active Substance: PIRFENIDONE
     Route: 048
     Dates: start: 20151103
  10. VALSARTAN. [Concomitant]
     Active Substance: VALSARTAN
  11. ESBRIET [Suspect]
     Active Substance: PIRFENIDONE
     Dosage: 1-1-1
     Route: 048
     Dates: start: 20140815
  12. ALENDRONATE [Concomitant]
     Active Substance: ALENDRONATE SODIUM
  13. VENTOLIN [Concomitant]
     Active Substance: ALBUTEROL SULFATE
  14. OXYGEN. [Concomitant]
     Active Substance: OXYGEN
     Dosage: 100%
     Route: 065
  15. NOLVADEX-D [Concomitant]
  16. PREDNISONE. [Concomitant]
     Active Substance: PREDNISONE
  17. ESBRIET [Suspect]
     Active Substance: PIRFENIDONE
     Dosage: 2-1-1
     Route: 048
     Dates: start: 20140822
  18. HYDROCHLOROTHIAZIDE. [Concomitant]
     Active Substance: HYDROCHLOROTHIAZIDE
  19. ESBRIET [Suspect]
     Active Substance: PIRFENIDONE
     Route: 048
     Dates: end: 201410
  20. DEXILANT [Concomitant]
     Active Substance: DEXLANSOPRAZOLE
     Dosage: EVERY MORNING AT 8:00 AM
     Route: 065

REACTIONS (21)
  - Affective disorder [Unknown]
  - Chills [Unknown]
  - Arthritis [Unknown]
  - Lung disorder [Recovered/Resolved with Sequelae]
  - Hyperhidrosis [Unknown]
  - Erythema [Unknown]
  - Retching [Unknown]
  - Pyrexia [Unknown]
  - Asthenia [Recovering/Resolving]
  - Nausea [Recovered/Resolved with Sequelae]
  - Tremor [Unknown]
  - Dizziness [Recovered/Resolved with Sequelae]
  - Weight decreased [Recovered/Resolved with Sequelae]
  - Headache [Unknown]
  - Dyspepsia [Unknown]
  - Back pain [Unknown]
  - Restlessness [Unknown]
  - Decreased appetite [Recovered/Resolved with Sequelae]
  - Dyspnoea exertional [Unknown]
  - Dizziness [Unknown]
  - Heart rate increased [Unknown]

NARRATIVE: CASE EVENT DATE: 20140828
